FAERS Safety Report 6931617-8 (Version None)
Quarter: 2010Q3

REPORT INFORMATION
  Report Type: 
  Country: None (occurrence: None)
  Receive Date: 20100819
  Receipt Date: 20100807
  Transmission Date: 20110219
  Serious: No
  Sender: FDA-Public Use
  Company Number: US-B.I. PHARMACEUTICALS,INC./RIDGEFIELD-2010-BP-09041BP

PATIENT
  Age: 99 Year
  Sex: Male

DRUGS (1)
  1. AGGRENOX [Suspect]

REACTIONS (1)
  - FEMORAL NECK FRACTURE [None]
